FAERS Safety Report 6193028-5 (Version None)
Quarter: 2009Q2

REPORT INFORMATION
  Report Type: 
  Country: None (occurrence: None)
  Receive Date: 20090518
  Receipt Date: 20090515
  Transmission Date: 20091009
  Serious: Yes (Death)
  Sender: FDA-Public Use
  Company Number: US-ELI_LILLY_AND_COMPANY-US200902006767

PATIENT
  Age: 47 Year
  Sex: Male

DRUGS (1)
  1. XIGRIS [Suspect]
     Indication: SEPSIS
     Dosage: 24 D/F, UNK
     Route: 042
     Dates: start: 20090219, end: 20090222

REACTIONS (1)
  - NECROTISING FASCIITIS [None]
